FAERS Safety Report 9310576 (Version 1)
Quarter: 2013Q2

REPORT INFORMATION
  Report Type: Spontaneous
  Country: BE (occurrence: BE)
  Receive Date: 20130527
  Receipt Date: 20130527
  Transmission Date: 20140414
  Serious: Yes (Life-Threatening, Hospitalization)
  Sender: FDA-Public Use
  Company Number: BE-PFIZER INC-2013160948

PATIENT
  Age: 52 Year
  Sex: Male

DRUGS (15)
  1. VANCOMYCIN [Suspect]
     Indication: PYREXIA
     Dosage: UNK
  2. VANCOMYCIN [Suspect]
     Indication: TOOTH EXTRACTION
  3. AUGMENTIN - SLOW RELEASE [Suspect]
     Indication: PYREXIA
     Dosage: 1 G, 2X/DAY
     Dates: end: 201301
  4. AUGMENTIN - SLOW RELEASE [Suspect]
     Indication: TOOTH EXTRACTION
  5. AMUKIN [Suspect]
     Indication: PYREXIA
     Dosage: UNK
  6. AMUKIN [Suspect]
     Indication: TOOTH EXTRACTION
  7. MEROPENEM [Suspect]
     Indication: PYREXIA
     Dosage: UNK
  8. MEROPENEM [Suspect]
     Indication: TOOTH EXTRACTION
  9. AMIKACIN [Suspect]
     Indication: PYREXIA
  10. AMIKACIN [Suspect]
     Indication: TOOTH EXTRACTION
  11. EMCONCOR [Concomitant]
     Dosage: UNK
  12. ZANTAC [Concomitant]
     Dosage: UNK
  13. ZOCOR [Concomitant]
     Dosage: UNK
  14. LANTUS [Concomitant]
     Dosage: UNK
  15. NOVORAPID [Concomitant]
     Dosage: UNK

REACTIONS (2)
  - Thrombocytopenia [Recovered/Resolved]
  - Viral infection [Unknown]
